FAERS Safety Report 19761769 (Version 1)
Quarter: 2021Q3

REPORT INFORMATION
  Report Type: Other
  Country: US (occurrence: US)
  Receive Date: 20210827
  Receipt Date: 20210827
  Transmission Date: 20211014
  Serious: Yes (Other)
  Sender: FDA-Public Use
  Company Number: US-ROCHE-2897655

PATIENT

DRUGS (6)
  1. DURVALUMAB. [Suspect]
     Active Substance: DURVALUMAB
     Indication: NEOPLASM MALIGNANT
     Route: 065
  2. ATEZOLIZUMAB. [Suspect]
     Active Substance: ATEZOLIZUMAB
     Indication: NEOPLASM MALIGNANT
     Route: 065
  3. NIVOLUMAB [Suspect]
     Active Substance: NIVOLUMAB
     Indication: NEOPLASM MALIGNANT
     Route: 065
  4. AVELUMAB [Suspect]
     Active Substance: AVELUMAB
     Indication: NEOPLASM MALIGNANT
     Route: 065
  5. IPILIMUMAB [Suspect]
     Active Substance: IPILIMUMAB
     Indication: NEOPLASM MALIGNANT
     Route: 065
  6. PEMBROLIZUMAB. [Suspect]
     Active Substance: PEMBROLIZUMAB
     Indication: NEOPLASM MALIGNANT
     Route: 065

REACTIONS (15)
  - Diarrhoea [Unknown]
  - Nephritis [Unknown]
  - Rash [Unknown]
  - Pneumonitis [Unknown]
  - Hypophysitis [Unknown]
  - Myalgia [Unknown]
  - Adrenal insufficiency [Unknown]
  - Uveitis [Unknown]
  - Meningitis aseptic [Unknown]
  - Diabetes mellitus [Unknown]
  - Encephalopathy [Unknown]
  - Hypothyroidism [Unknown]
  - Arthralgia [Unknown]
  - Microangiopathic haemolytic anaemia [Unknown]
  - Inappropriate antidiuretic hormone secretion [Unknown]
